FAERS Safety Report 8505810-7 (Version None)
Quarter: 2012Q3

REPORT INFORMATION
  Report Type: 
  Country: None (occurrence: None)
  Receive Date: 20120706
  Receipt Date: 20120706
  Transmission Date: 20120928
  Serious: Yes (Hospitalization)
  Sender: FDA-Public Use
  Company Number: None

PATIENT
  Age: 60 Year
  Sex: Female
  Weight: 80.2867 kg

DRUGS (7)
  1. LAPATINIB [Suspect]
     Indication: BREAST CANCER
     Dosage: 1250 MG PO
     Route: 048
     Dates: start: 20120312, end: 20120630
  2. POTASSIUM CHLORIDE [Concomitant]
  3. XANAX [Concomitant]
  4. EVEROLIMUS 5 MG - GLAXO-SMITH-KLINE [Suspect]
     Indication: BREAST CANCER
     Dosage: 5MG PO
     Route: 048
     Dates: start: 20120312, end: 20120630
  5. MS CONTIN [Concomitant]
  6. DECADRON [Concomitant]
  7. MAGIC MOUTHWASH [Concomitant]

REACTIONS (2)
  - PLEURAL EFFUSION [None]
  - BREAST CANCER METASTATIC [None]
